FAERS Safety Report 25433426 (Version 1)
Quarter: 2025Q2

REPORT INFORMATION
  Report Type: Spontaneous
  Country: US (occurrence: US)
  Receive Date: 20250613
  Receipt Date: 20250613
  Transmission Date: 20250717
  Serious: No
  Sender: ABBVIE
  Company Number: US-ABBVIE-6319329

PATIENT
  Sex: Female

DRUGS (4)
  1. RESTASIS [Suspect]
     Active Substance: CYCLOSPORINE
     Indication: Macular degeneration
     Route: 047
  2. RESTASIS [Suspect]
     Active Substance: CYCLOSPORINE
     Indication: Dry eye
  3. MURO 128 [Concomitant]
     Active Substance: SODIUM CHLORIDE
     Indication: Product used for unknown indication
  4. XIIDRA [Concomitant]
     Active Substance: LIFITEGRAST
     Indication: Product used for unknown indication

REACTIONS (1)
  - Off label use [Unknown]
